FAERS Safety Report 4608935-1 (Version None)
Quarter: 2005Q1

REPORT INFORMATION
  Report Type: 
  Country: None (occurrence: None)
  Receive Date: 20050315
  Receipt Date: 20050218
  Transmission Date: 20050727
  Serious: Yes (Other)
  Sender: FDA-Public Use
  Company Number: PHNU2005DE01051

PATIENT
  Age: 57 Year
  Sex: Female
  Weight: 52 kg

DRUGS (14)
  1. SANDIMMUNE [Suspect]
     Indication: HEART TRANSPLANT
     Dosage: 75-0-50MG/DAY
     Route: 048
     Dates: start: 20020101
  2. SELEN E-VITAMIN [Suspect]
  3. PREDNISOLONE [Concomitant]
     Indication: HEART TRANSPLANT
     Dosage: 2.5 MG, QD
  4. DILTIAZEM [Concomitant]
     Dosage: 30 MG, BID
  5. LASIX [Concomitant]
     Dosage: 20 MG, QD
  6. XIPAMIDE [Concomitant]
     Dosage: 10 MG, QD
  7. KALINOR-BRAUSETABLETTEN [Concomitant]
     Dosage: UNK, PRN
  8. MAGNESIUM [Concomitant]
     Dosage: 100 MG, TID
  9. SEMPERA [Concomitant]
     Dosage: 100 MG, QD
  10. AMPHO-MORONAL [Concomitant]
     Dosage: 1 DF, TID
  11. DEKRISTOL [Concomitant]
     Dosage: 400 UNK, BID
  12. AGOPTON [Concomitant]
     Dosage: 30 MG, QD
  13. PRAVASIN [Concomitant]
     Dosage: 20 MG, QD
  14. ACETYLSALICYLIC ACID SRT [Concomitant]
     Dosage: 50 MG, QD

REACTIONS (14)
  - AORTIC VALVE DISEASE [None]
  - AORTIC VALVE INCOMPETENCE [None]
  - BASAL CELL CARCINOMA [None]
  - BLOOD CREATININE INCREASED [None]
  - CREATININE URINE DECREASED [None]
  - DRUG INTERACTION [None]
  - DRUG LEVEL FLUCTUATING [None]
  - JOINT SWELLING [None]
  - MITRAL VALVE DISEASE [None]
  - MITRAL VALVE INCOMPETENCE [None]
  - RENAL FUNCTION TEST ABNORMAL [None]
  - RENAL IMPAIRMENT [None]
  - SENSATION OF HEAVINESS [None]
  - TRICUSPID VALVE INCOMPETENCE [None]
